FAERS Safety Report 8758533 (Version 1)
Quarter: 2012Q4

REPORT INFORMATION
  Report Type: 
  Country: US (occurrence: US)
  Receive Date: 20120829
  Receipt Date: 20120829
  Transmission Date: 20130627
  Serious: No
  Sender: FDA-Public Use
  Company Number: US-GLAXOSMITHKLINE-A0939998A

PATIENT
  Age: 57 Year
  Sex: Female

DRUGS (3)
  1. ZOVIRAX [Suspect]
     Indication: PRODUCT USED FOR UNKNOWN INDICATION
     Route: 061
     Dates: start: 2011, end: 2011
  2. NEXIUM [Concomitant]
  3. BACTROBAN [Concomitant]

REACTIONS (2)
  - Nausea [Not Recovered/Not Resolved]
  - Dysgeusia [Unknown]
